FAERS Safety Report 17391691 (Version 1)
Quarter: 2020Q1

REPORT INFORMATION
  Report Type: Spontaneous
  Country: US (occurrence: US)
  Receive Date: 20200207
  Receipt Date: 20200207
  Transmission Date: 20200409
  Serious: Yes (Death, Other)
  Sender: FDA-Public Use
  Company Number: US-PFIZER INC-2019058134

PATIENT
  Age: 50 Year
  Sex: Female
  Weight: 60.32 kg

DRUGS (3)
  1. REVATIO [Suspect]
     Active Substance: SILDENAFIL CITRATE
     Indication: PULMONARY HYPERTENSION
     Dosage: 80 MG, 3X/DAY [TAKE 4 TABS 3 ? DAILY/80MG 3 TIMES A DAY/I TAKE 4 PILLS THREE TIMES A DAY]
     Route: 048
     Dates: start: 201709
  2. REVATIO [Suspect]
     Active Substance: SILDENAFIL CITRATE
     Indication: CARDIAC FAILURE CONGESTIVE
  3. LETAIRIS [Concomitant]
     Active Substance: AMBRISENTAN
     Dosage: 10 MG, 1X/DAY

REACTIONS (2)
  - Respiratory failure [Fatal]
  - Prescribed overdose [Unknown]

NARRATIVE: CASE EVENT DATE: 201709
